FAERS Safety Report 8981337 (Version 1)
Quarter: 2012Q4

REPORT INFORMATION
  Report Type: 
  Country: US (occurrence: US)
  Receive Date: 20121221
  Receipt Date: 20121221
  Transmission Date: 20130627
  Serious: Yes (Other)
  Sender: FDA-Public Use
  Company Number: US-TEVA-376897USA

PATIENT
  Sex: Female
  Weight: 99.88 kg

DRUGS (5)
  1. PROAIR HFA [Suspect]
     Indication: CARDIAC FAILURE CONGESTIVE
     Dosage: 180 mcg
     Dates: start: 20121127, end: 20121217
  2. NORVASC [Concomitant]
  3. IMDUR [Concomitant]
  4. LOSARTAN [Concomitant]
  5. VICODIN [Concomitant]

REACTIONS (5)
  - Rheumatoid arthritis [Not Recovered/Not Resolved]
  - Eye pain [Not Recovered/Not Resolved]
  - Photophobia [Not Recovered/Not Resolved]
  - Oropharyngeal pain [Not Recovered/Not Resolved]
  - Nasal discomfort [Not Recovered/Not Resolved]
